FAERS Safety Report 5331825-6 (Version None)
Quarter: 2007Q2

REPORT INFORMATION
  Report Type: 
  Country: None (occurrence: None)
  Receive Date: 20070523
  Receipt Date: 20070514
  Transmission Date: 20071010
  Serious: Yes (Other)
  Sender: FDA-Public Use
  Company Number: GB-JNJFOC-20070503814

PATIENT
  Age: 44 Year
  Sex: Female

DRUGS (10)
  1. REMICADE [Suspect]
     Indication: COLITIS ULCERATIVE
     Route: 042
  2. ADCAL-D3 [Concomitant]
  3. ASACOL [Concomitant]
  4. BUSCOPAN [Concomitant]
  5. CITALOPRAM HYDROBROMIDE [Concomitant]
     Route: 048
  6. HUMALOG [Concomitant]
  7. PARACETAMOL [Concomitant]
  8. PREDNISOLONE [Concomitant]
     Route: 048
  9. PROCHLORPERAZINE [Concomitant]
     Route: 048
  10. RANITIDINE [Concomitant]
     Route: 048

REACTIONS (3)
  - CHEST PAIN [None]
  - CONVERSION DISORDER [None]
  - CONVULSION [None]
